FAERS Safety Report 21969819 (Version 7)
Quarter: 2024Q1

REPORT INFORMATION
  Report Type: Report from Study
  Country: IT (occurrence: IT)
  Receive Date: 20230208
  Receipt Date: 20240131
  Transmission Date: 20240410
  Serious: Yes (Other)
  Sender: FDA-Public Use
  Company Number: IT-002147023-NVSC2022IT035118

PATIENT
  Age: 35 Year
  Sex: Female
  Weight: 57 kg

DRUGS (28)
  1. ERENUMAB [Suspect]
     Active Substance: ERENUMAB
     Indication: Migraine prophylaxis
     Dosage: 140 MG, QMO
     Route: 058
     Dates: start: 20210518, end: 20220125
  2. ERENUMAB [Suspect]
     Active Substance: ERENUMAB
     Indication: Headache
  3. SUMATRIPTAN SUCCINATE [Suspect]
     Active Substance: SUMATRIPTAN SUCCINATE
     Indication: Migraine
     Dosage: 50 MG, (ONLY TAKEN ONCE AS SYMPTOMATIC)
     Route: 065
     Dates: start: 20220329, end: 20220329
  4. CAFFEINE\INDOMETHACIN\PROCHLORPERAZINE MALEATE [Concomitant]
     Active Substance: CAFFEINE\INDOMETHACIN\PROCHLORPERAZINE MALEATE
     Indication: Headache
     Dosage: 75 MG
     Route: 065
     Dates: start: 20211210
  5. CAFFEINE\INDOMETHACIN\PROCHLORPERAZINE MALEATE [Concomitant]
     Active Substance: CAFFEINE\INDOMETHACIN\PROCHLORPERAZINE MALEATE
     Indication: Migraine
     Dosage: 2 MG
     Route: 065
     Dates: start: 20211210
  6. CAFFEINE\INDOMETHACIN\PROCHLORPERAZINE MALEATE [Concomitant]
     Active Substance: CAFFEINE\INDOMETHACIN\PROCHLORPERAZINE MALEATE
     Dosage: 25 MG
     Route: 065
     Dates: start: 20211210
  7. CAFFEINE\INDOMETHACIN\PROCHLORPERAZINE MALEATE [Concomitant]
     Active Substance: CAFFEINE\INDOMETHACIN\PROCHLORPERAZINE MALEATE
     Dosage: UNK
     Route: 065
     Dates: start: 20211221, end: 20211224
  8. CAFFEINE\INDOMETHACIN\PROCHLORPERAZINE MALEATE [Concomitant]
     Active Substance: CAFFEINE\INDOMETHACIN\PROCHLORPERAZINE MALEATE
     Dosage: UNK
     Route: 065
     Dates: start: 20211230
  9. CAFFEINE\INDOMETHACIN\PROCHLORPERAZINE MALEATE [Concomitant]
     Active Substance: CAFFEINE\INDOMETHACIN\PROCHLORPERAZINE MALEATE
     Dosage: UNK
     Route: 065
     Dates: start: 20220102
  10. CAFFEINE\INDOMETHACIN\PROCHLORPERAZINE MALEATE [Concomitant]
     Active Substance: CAFFEINE\INDOMETHACIN\PROCHLORPERAZINE MALEATE
     Dosage: UNK
     Route: 065
     Dates: start: 20220104
  11. CAFFEINE\INDOMETHACIN\PROCHLORPERAZINE MALEATE [Concomitant]
     Active Substance: CAFFEINE\INDOMETHACIN\PROCHLORPERAZINE MALEATE
     Dosage: UNK
     Route: 065
     Dates: start: 20220105
  12. CAFFEINE\INDOMETHACIN\PROCHLORPERAZINE MALEATE [Concomitant]
     Active Substance: CAFFEINE\INDOMETHACIN\PROCHLORPERAZINE MALEATE
     Dosage: UNK, (ONLY TAKEN AS SYMPTOMATIC FOR MIGRAINE)
     Route: 065
     Dates: start: 20220114
  13. TACHIPIRINA [Concomitant]
     Active Substance: ACETAMINOPHEN
     Indication: Migraine
     Dosage: UNK, 1 (WAS SAME AS PARACETAMOL)
     Route: 065
     Dates: start: 20220329, end: 20220329
  14. ASCORBIC ACID\FERRIC PYROPHOSPHATE [Concomitant]
     Active Substance: ASCORBIC ACID\FERRIC PYROPHOSPHATE
     Indication: Iron deficiency
     Dosage: 1 DOSAGE FORM, QD
     Route: 048
     Dates: start: 20220901, end: 20221116
  15. LEVOTHYROXINE SODIUM [Concomitant]
     Active Substance: LEVOTHYROXINE SODIUM
     Indication: Autoimmune thyroiditis
     Dosage: UNK, (50 UG/DIE PER 5 DAYS 75UG/DIE PER 2 DAYS)
     Route: 048
     Dates: start: 202005, end: 20220309
  16. LEVOTHYROXINE SODIUM [Concomitant]
     Active Substance: LEVOTHYROXINE SODIUM
     Indication: Autoimmune thyroiditis
     Dosage: UNK, (50 UG PER 4 DAYS 75 UG PER 3 DAYS)
     Route: 048
     Dates: start: 20220310
  17. LEVOTHYROXINE [Concomitant]
     Active Substance: LEVOTHYROXINE\LEVOTHYROXINE SODIUM
     Indication: Hypothyroidism
     Dosage: 50 UG (MON, WED, THU, FRI, SUN) 75 MCG (TU, SA)
     Route: 048
     Dates: start: 202005, end: 20220315
  18. LEVOTHYROXINE [Concomitant]
     Active Substance: LEVOTHYROXINE\LEVOTHYROXINE SODIUM
     Dosage: 25 UG
     Route: 048
     Dates: start: 20220316
  19. ACETAMINOPHEN [Concomitant]
     Active Substance: ACETAMINOPHEN
     Indication: COVID-19
     Dosage: 1 G
     Route: 048
     Dates: start: 20220322, end: 20220329
  20. ACETAMINOPHEN [Concomitant]
     Active Substance: ACETAMINOPHEN
     Indication: Migraine
     Dosage: 1 G, PRN
     Route: 048
  21. ACETAMINOPHEN [Concomitant]
     Active Substance: ACETAMINOPHEN
     Indication: SARS-CoV-2 test positive
  22. ACETAMINOPHEN [Concomitant]
     Active Substance: ACETAMINOPHEN
     Indication: Headache
     Dosage: 1000 MG
     Route: 048
     Dates: start: 20211216
  23. ACETAMINOPHEN [Concomitant]
     Active Substance: ACETAMINOPHEN
     Indication: Migraine
     Dosage: 1000 MG
     Route: 048
     Dates: start: 20211225
  24. ACETAMINOPHEN [Concomitant]
     Active Substance: ACETAMINOPHEN
     Indication: Migraine
     Dosage: 1000 MG
     Route: 048
     Dates: start: 20210102
  25. ACETAMINOPHEN [Concomitant]
     Active Substance: ACETAMINOPHEN
     Dosage: 1000 MG
     Route: 048
     Dates: start: 20210103
  26. ACETAMINOPHEN [Concomitant]
     Active Substance: ACETAMINOPHEN
     Dosage: 1000 MG
     Route: 048
     Dates: start: 20210204
  27. ACETAMINOPHEN [Concomitant]
     Active Substance: ACETAMINOPHEN
     Dosage: 1000 MG
     Route: 048
     Dates: start: 20210208
  28. ACETAMINOPHEN [Concomitant]
     Active Substance: ACETAMINOPHEN
     Dosage: UNK, (ONLY TAKEN AS SYMPTOMATIC FOR MIGRAINE)

REACTIONS (7)
  - Hypothyroidism [Recovering/Resolving]
  - Maternal exposure during pregnancy [Recovered/Resolved]
  - Menstruation irregular [Unknown]
  - Induced labour [Unknown]
  - Normal newborn [Unknown]
  - Fatigue [Recovered/Resolved]
  - Headache [Recovered/Resolved]

NARRATIVE: CASE EVENT DATE: 20220115
